FAERS Safety Report 16775039 (Version 1)
Quarter: 2019Q3

REPORT INFORMATION
  Report Type: Other
  Country: GB (occurrence: GB)
  Receive Date: 20190905
  Receipt Date: 20190905
  Transmission Date: 20191005
  Serious: Yes (Other)
  Sender: FDA-Public Use
  Company Number: GB-EMCURE PHARMACEUTICALS LTD-2011-EPL-0001

PATIENT
  Age: 50 Year
  Sex: Male

DRUGS (1)
  1. METFORMIN [Suspect]
     Active Substance: METFORMIN HYDROCHLORIDE
     Indication: TYPE 2 DIABETES MELLITUS
     Dosage: UNK

REACTIONS (4)
  - Latent autoimmune diabetes in adults [Unknown]
  - Fatigue [Recovered/Resolved]
  - Glycosylated haemoglobin increased [Recovered/Resolved]
  - Feeling abnormal [Recovered/Resolved]
